FAERS Safety Report 4587039-0 (Version None)
Quarter: 2005Q1

REPORT INFORMATION
  Report Type: 
  Country: None (occurrence: None)
  Receive Date: 20050214
  Receipt Date: 20050203
  Transmission Date: 20050727
  Serious: Yes (Life-Threatening)
  Sender: FDA-Public Use
  Company Number: 2005AP00938

PATIENT
  Age: 55 Year
  Sex: Male

DRUGS (5)
  1. SEROQUEL [Suspect]
     Dosage: 900 MG DAILY PO
     Route: 048
     Dates: start: 20040424, end: 20040429
  2. VALPROIC ACID [Suspect]
     Indication: SCHIZOPHRENIA
     Dosage: 1 G DAILY
     Dates: start: 20040424
  3. COLOXYL [Concomitant]
  4. SENNA [Concomitant]
  5. LACTULOSE [Concomitant]

REACTIONS (6)
  - DRY MOUTH [None]
  - MUSCULOSKELETAL STIFFNESS [None]
  - NEUROLEPTIC MALIGNANT SYNDROME [None]
  - PYREXIA [None]
  - TACHYCARDIA [None]
  - TACHYPNOEA [None]
